FAERS Safety Report 15907460 (Version 2)
Quarter: 2019Q2

REPORT INFORMATION
  Report Type: Spontaneous
  Country: CY (occurrence: CY)
  Receive Date: 20190204
  Receipt Date: 20190401
  Transmission Date: 20190711
  Serious: Yes (Death, Hospitalization, Other)
  Sender: FDA-Public Use
  Company Number: CY-PFIZER INC-2019044937

PATIENT
  Age: 77 Year
  Sex: Female

DRUGS (6)
  1. KISQALI [Suspect]
     Active Substance: RIBOCICLIB
     Indication: BREAST CANCER METASTATIC
     Dosage: 600 MG, QD
     Route: 048
     Dates: start: 20181214, end: 20181223
  2. ZOLEDRONIC ACID [Suspect]
     Active Substance: ZOLEDRONIC ACID
     Indication: METASTASES TO BONE
     Dosage: 4 MG, QMO
     Route: 042
     Dates: start: 20181116
  3. ZOLEDRONIC ACID [Suspect]
     Active Substance: ZOLEDRONIC ACID
     Dosage: 4 MG, QMO (SECOND CYCLE)
     Route: 042
     Dates: start: 20181217
  4. METFORMIN [Concomitant]
     Active Substance: METFORMIN HYDROCHLORIDE
     Indication: DIABETES MELLITUS
     Route: 048
  5. LETROZOLE. [Concomitant]
     Active Substance: LETROZOLE
     Indication: BREAST CANCER METASTATIC
     Dosage: 2.5 MG, QD
     Route: 048
  6. RAMIPRIL. [Concomitant]
     Active Substance: RAMIPRIL
     Indication: HYPERTENSION
     Route: 048

REACTIONS (16)
  - Diarrhoea [Fatal]
  - Cardiac failure [Fatal]
  - Diabetes mellitus [Fatal]
  - Dehydration [Fatal]
  - Pyrexia [Fatal]
  - Blood phosphorus decreased [Fatal]
  - Alanine aminotransferase increased [Fatal]
  - Respiratory tract infection [Fatal]
  - Hypertension [Fatal]
  - Haemoglobin decreased [Fatal]
  - Transaminases increased [Fatal]
  - Aspartate aminotransferase increased [Fatal]
  - Renal failure [Fatal]
  - Pneumonia [Fatal]
  - Blood calcium decreased [Fatal]
  - Confusional state [Fatal]

NARRATIVE: CASE EVENT DATE: 20181224
